FAERS Safety Report 13039148 (Version 3)
Quarter: 2017Q1

REPORT INFORMATION
  Report Type: Spontaneous
  Country: FR (occurrence: FR)
  Receive Date: 20161219
  Receipt Date: 20170125
  Transmission Date: 20170428
  Serious: Yes (Other)
  Sender: FDA-Public Use
  Company Number: FR-AUROBINDO-AUR-APL-2016-15523

PATIENT
  Age: 4 Year
  Sex: Male

DRUGS (7)
  1. METHYLPREDNISOLONE. [Concomitant]
     Active Substance: METHYLPREDNISOLONE
     Indication: IMMUNOSUPPRESSION
  2. ABACIN [Concomitant]
     Active Substance: SULFAMETHOXAZOLE\TRIMETHOPRIM
     Indication: PRODUCT USED FOR UNKNOWN INDICATION
     Dosage: UNK
     Route: 065
  3. TACROLIMUS. [Concomitant]
     Active Substance: TACROLIMUS
     Indication: IMMUNOSUPPRESSION
  4. ACICLOVIR [Suspect]
     Active Substance: ACYCLOVIR
     Indication: PRODUCT USED FOR UNKNOWN INDICATION
     Route: 065
  5. BASILIXIMAB [Concomitant]
     Active Substance: BASILIXIMAB
     Indication: IMMUNOSUPPRESSION
  6. GANCICLOVIR. [Concomitant]
     Active Substance: GANCICLOVIR
     Indication: HUMAN HERPESVIRUS 6 INFECTION
  7. MYCOPHENOLATE MOFETIL. [Concomitant]
     Active Substance: MYCOPHENOLATE MOFETIL
     Indication: PRODUCT USED FOR UNKNOWN INDICATION

REACTIONS (15)
  - Eosinophilia [Recovered/Resolved]
  - Madarosis [Recovered/Resolved]
  - Hepatitis [Recovered/Resolved]
  - Skin ulcer [Unknown]
  - Rash [Unknown]
  - Eye ulcer [Recovered/Resolved]
  - Hyperkeratosis [Recovered/Resolved]
  - Alopecia [Recovered/Resolved]
  - Ulcerative keratitis [Unknown]
  - Hepatic enzyme increased [Unknown]
  - Mouth ulceration [Recovered/Resolved]
  - Rash papulosquamous [Recovered/Resolved]
  - Dermatitis exfoliative [Recovered/Resolved]
  - Condition aggravated [Unknown]
  - Xerophthalmia [Unknown]
